FAERS Safety Report 6097842-6 (Version None)
Quarter: 2009Q1

REPORT INFORMATION
  Report Type: 
  Country: None (occurrence: None)
  Receive Date: 20090227
  Receipt Date: 20090218
  Transmission Date: 20090719
  Serious: Yes (Life-Threatening, Hospitalization, Disabling, Other)
  Sender: FDA-Public Use
  Company Number: CA-PFIZER INC-2009156397

PATIENT

DRUGS (20)
  1. BLINDED *PLACEBO [Suspect]
     Indication: OSTEOARTHRITIS
     Dosage: UNK
     Dates: start: 20080116
  2. BLINDED CELECOXIB [Suspect]
     Indication: OSTEOARTHRITIS
     Dosage: UNK
     Dates: start: 20080116
  3. IBUPROFEN TABLETS [Suspect]
     Indication: OSTEOARTHRITIS
     Dosage: UNK
     Dates: start: 20080116
  4. NAPROXEN [Suspect]
     Indication: OSTEOARTHRITIS
     Dosage: UNK
     Dates: start: 20080116
  5. BLINDED *PLACEBO [Suspect]
     Dosage: UNK
     Route: 048
     Dates: start: 20071219, end: 20080115
  6. BLINDED CELECOXIB [Suspect]
     Dosage: UNK
     Route: 048
     Dates: start: 20071219, end: 20080115
  7. IBUPROFEN TABLETS [Suspect]
     Dosage: UNK
     Route: 048
     Dates: start: 20071219, end: 20080115
  8. NAPROXEN [Suspect]
     Dosage: UNK
     Route: 048
     Dates: start: 20071219, end: 20080115
  9. NEXIUM [Concomitant]
     Dosage: 40 MG, 2X/DAY
     Route: 048
     Dates: start: 20080820
  10. NEXIUM [Concomitant]
     Dosage: 20 MG, 2X/DAY
     Route: 048
     Dates: start: 20071219, end: 20080819
  11. ASPIRIN [Concomitant]
     Route: 048
     Dates: start: 20020912
  12. AMLODIPINE [Concomitant]
     Route: 048
     Dates: start: 20070123
  13. HYDROCHLOROTHIAZIDE [Concomitant]
     Route: 048
     Dates: start: 20050719
  14. RAMIPRIL [Concomitant]
     Route: 048
     Dates: start: 20000711
  15. ATORVASTATIN [Concomitant]
     Route: 048
     Dates: start: 20040714
  16. ACETAMINOPHEN [Concomitant]
     Route: 048
     Dates: start: 20080130
  17. LANTUS [Concomitant]
     Route: 058
     Dates: start: 20080418
  18. HUMALOG [Concomitant]
     Route: 058
     Dates: start: 20080418
  19. FLEXERIL [Concomitant]
     Route: 048
     Dates: start: 20081210
  20. TRAMADOL HYDROCHLORIDE [Concomitant]
     Route: 048
     Dates: start: 20081217

REACTIONS (7)
  - ANAEMIA [None]
  - ATRIAL FLUTTER [None]
  - DIABETIC KETOACIDOSIS [None]
  - MYOCARDIAL INFARCTION [None]
  - PERIPHERAL ISCHAEMIA [None]
  - PNEUMONIA [None]
  - PULMONARY OEDEMA [None]
